FAERS Safety Report 22053795 (Version 1)
Quarter: 2023Q1

REPORT INFORMATION
  Report Type: Report from Study
  Country: CO (occurrence: CO)
  Receive Date: 20230302
  Receipt Date: 20230302
  Transmission Date: 20230417
  Serious: Yes (Hospitalization, Other)
  Sender: FDA-Public Use
  Company Number: CO-ABBVIE-4321492

PATIENT
  Age: 62 Year
  Sex: Female

DRUGS (1)
  1. HUMIRA [Suspect]
     Active Substance: ADALIMUMAB
     Indication: Rheumatoid arthritis
     Dosage: FORM STRENGTH: 40 MG
     Route: 058
     Dates: start: 20180305, end: 20220405

REACTIONS (5)
  - Inflammation of wound [Recovered/Resolved]
  - Fluid retention [Not Recovered/Not Resolved]
  - Discharge [Not Recovered/Not Resolved]
  - Candida infection [Not Recovered/Not Resolved]
  - Seroma [Not Recovered/Not Resolved]

NARRATIVE: CASE EVENT DATE: 20230101
